FAERS Safety Report 4977098-5 (Version None)
Quarter: 2006Q1

REPORT INFORMATION
  Report Type: 
  Country: None (occurrence: None)
  Receive Date: 20060223
  Receipt Date: 20050907
  Transmission Date: 20060701
  Serious: Yes (Other)
  Sender: FDA-Public Use
  Company Number: HQWYE424513SEP05

PATIENT

DRUGS (1)
  1. EFFEXOR [Suspect]
     Dosage: WEANEDOFF

REACTIONS (3)
  - DRUG WITHDRAWAL SYNDROME [None]
  - MOTION SICKNESS [None]
  - VERTIGO [None]
